FAERS Safety Report 6601210-5 (Version None)
Quarter: 2010Q1

REPORT INFORMATION
  Report Type: 
  Country: None (occurrence: None)
  Receive Date: 20100225
  Receipt Date: 20100215
  Transmission Date: 20100710
  Serious: No
  Sender: FDA-Public Use
  Company Number: US-ELI_LILLY_AND_COMPANY-US201002005062

PATIENT
  Sex: Female

DRUGS (2)
  1. CYMBALTA [Suspect]
     Indication: DEPRESSION
     Dosage: 30 MG, UNK
     Dates: start: 20091101
  2. COUMADIN [Concomitant]
     Dosage: 5 MG, UNK
     Dates: start: 20090101

REACTIONS (1)
  - INTERNATIONAL NORMALISED RATIO INCREASED [None]
